FAERS Safety Report 7643079-6 (Version None)
Quarter: 2011Q3

REPORT INFORMATION
  Report Type: 
  Country: None (occurrence: None)
  Receive Date: 20110728
  Receipt Date: 20110719
  Transmission Date: 20111222
  Serious: Yes (Disabling, Other)
  Sender: FDA-Public Use
  Company Number: US-ASTRAZENECA-2011SE24659

PATIENT
  Age: 60 Year
  Sex: Female

DRUGS (24)
  1. MUCINEX [Concomitant]
  2. FIORICET [Concomitant]
     Indication: TENSION HEADACHE
  3. ALENDRONATE SODIUM [Concomitant]
     Indication: BONE DISORDER
     Dosage: FOR 1 WEEK
  4. EFFEXOR XR [Concomitant]
     Indication: DEPRESSION
  5. OSTEO BI-FLEX [Concomitant]
     Indication: ARTHRALGIA
     Dosage: 2/DAY
  6. PERCOCET [Concomitant]
     Indication: NECK PAIN
     Dosage: 10 MG/325 MG
  7. FISH OIL [Concomitant]
     Indication: MEDICAL DIET
  8. COLON CLEAR FORMULA [Concomitant]
     Indication: MEDICAL DIET
  9. LORATADINE [Concomitant]
  10. AMLODIPINE BESYLATE [Concomitant]
     Indication: HYPERTENSION
     Dosage: 10-40MG/DAY
  11. ASPIRIN [Concomitant]
     Indication: CARDIAC DISORDER
  12. FIORICET [Concomitant]
     Indication: SINUS DISORDER
  13. PERCOCET [Concomitant]
     Indication: BACK PAIN
     Dosage: 10 MG/325 MG
  14. RESVERATROL [Concomitant]
  15. NAPROXEN (ALEVE) [Concomitant]
     Dosage: 220MG 2-4/DAY
  16. SIMVASTATIN [Concomitant]
     Indication: BLOOD CHOLESTEROL
  17. ZOLPIDEM [Concomitant]
     Indication: SLEEP DISORDER
  18. DIAZEPAM [Concomitant]
     Indication: STRESS
  19. ZICAM [Concomitant]
     Indication: HYPERSENSITIVITY
  20. NEXIUM [Suspect]
     Indication: GASTRIC ULCER
     Route: 048
  21. NEXIUM [Suspect]
     Indication: GASTRITIS
     Route: 048
  22. CORAL CALCIUM [Concomitant]
     Dosage: 3/DAY
  23. NEILMED SINUS RINSE [Concomitant]
     Indication: CHRONIC SINUSITIS
  24. CO Q-10 [Concomitant]
     Indication: CARDIAC DISORDER

REACTIONS (14)
  - MALAISE [None]
  - ARTHROPATHY [None]
  - ACCIDENT [None]
  - SCOLIOSIS [None]
  - MENISCUS LESION [None]
  - ULCER [None]
  - MULTIPLE ALLERGIES [None]
  - HAND FRACTURE [None]
  - ROTATOR CUFF SYNDROME [None]
  - DISABILITY [None]
  - HERPES ZOSTER [None]
  - JOINT DISLOCATION [None]
  - SINUSITIS [None]
  - GAIT DISTURBANCE [None]
